FAERS Safety Report 8189517 (Version 2)
Quarter: 2012Q4

REPORT INFORMATION
  Report Type: 
  Country: US (occurrence: US)
  Receive Date: 20111019
  Receipt Date: 20121121
  Transmission Date: 20130627
  Serious: No
  Sender: FDA-Public Use
  Company Number: US-BRISTOL-MYERS SQUIBB COMPANY-15561970

PATIENT
  Age: 71 Year
  Sex: Female
  Weight: 56.23 kg

DRUGS (1)
  1. AVALIDE [Suspect]
     Dosage: 1 df = 300/12.5mg

REACTIONS (2)
  - Hypertension [Unknown]
  - Product quality issue [None]
